FAERS Safety Report 10085376 (Version 2)
Quarter: 2014Q2

REPORT INFORMATION
  Report Type: Spontaneous
  Country: SI (occurrence: SI)
  Receive Date: 20140417
  Receipt Date: 20140514
  Transmission Date: 20141212
  Serious: Yes (Hospitalization, Disabling)
  Sender: FDA-Public Use
  Company Number: SI-ROCHE-1384426

PATIENT
  Age: 36 Year
  Sex: Male

DRUGS (1)
  1. ZELBORAF [Suspect]
     Indication: METASTATIC MALIGNANT MELANOMA
     Route: 065
     Dates: start: 20131218

REACTIONS (2)
  - Depression [Not Recovered/Not Resolved]
  - Epilepsy [Unknown]
